FAERS Safety Report 13511205 (Version 1)
Quarter: 2017Q2

REPORT INFORMATION
  Report Type: Report from Study
  Country: GR (occurrence: GR)
  Receive Date: 20170503
  Receipt Date: 20170503
  Transmission Date: 20170830
  Serious: Yes (Other)
  Sender: FDA-Public Use
  Company Number: GR-GILEAD-2017-0267885

PATIENT
  Age: 53 Year
  Sex: Male

DRUGS (2)
  1. TENOFOVIR DISOPROXIL FUMARATE. [Suspect]
     Active Substance: TENOFOVIR DISOPROXIL FUMARATE
     Indication: HEPATITIS B
     Dosage: UNK
     Route: 048
  2. TENOFOVIR DISOPROXIL FUMARATE. [Suspect]
     Active Substance: TENOFOVIR DISOPROXIL FUMARATE
     Dosage: UNK
     Route: 048
     Dates: start: 20160212

REACTIONS (1)
  - Hepatitis B reactivation [Unknown]
